FAERS Safety Report 8577894-1 (Version None)
Quarter: 2012Q3

REPORT INFORMATION
  Report Type: 
  Country: None (occurrence: None)
  Receive Date: 20120808
  Receipt Date: 20120801
  Transmission Date: 20120928
  Serious: No
  Sender: FDA-Public Use
  Company Number: US-BIOGENIDEC-2012BI029580

PATIENT
  Sex: Female

DRUGS (1)
  1. TYSABRI [Suspect]
     Indication: MULTIPLE SCLEROSIS
     Route: 042
     Dates: start: 20091118

REACTIONS (6)
  - LATEX ALLERGY [None]
  - HYPOTHYROIDISM [None]
  - DRUG HYPERSENSITIVITY [None]
  - RENAL DISORDER [None]
  - HEART DISEASE CONGENITAL [None]
  - HYPERTENSION [None]
